FAERS Safety Report 16017537 (Version 1)
Quarter: 2019Q1

REPORT INFORMATION
  Report Type: Report from Study
  Country: None (occurrence: GT)
  Receive Date: 20190228
  Receipt Date: 20190228
  Transmission Date: 20190418
  Serious: Yes (Other)
  Sender: FDA-Public Use
  Company Number: GT-ABBVIE-19S-069-2682840-00

PATIENT
  Age: 50 Year
  Sex: Male

DRUGS (1)
  1. ZEMPLAR [Suspect]
     Active Substance: PARICALCITOL
     Indication: HYPERPARATHYROIDISM SECONDARY
     Route: 042
     Dates: start: 20160801

REACTIONS (2)
  - Blindness [Unknown]
  - Hypertension [Unknown]

NARRATIVE: CASE EVENT DATE: 201810
